FAERS Safety Report 9372654 (Version 1)
Quarter: 2013Q2

REPORT INFORMATION
  Report Type: Report from Study
  Country: US (occurrence: US)
  Receive Date: 20130627
  Receipt Date: 20130627
  Transmission Date: 20140414
  Serious: Yes (Death)
  Sender: FDA-Public Use
  Company Number: US-MYLANLABS-2013S1004577

PATIENT
  Age: 64 Year
  Sex: Male

DRUGS (8)
  1. CLOZAPINE TABLETS [Suspect]
     Route: 048
     Dates: start: 2011
  2. ASA [Concomitant]
  3. MELATONIN [Concomitant]
  4. OXYBUTYNIN [Concomitant]
  5. DIVALPROEX [Concomitant]
  6. COLACE [Concomitant]
  7. LAMICTAL [Concomitant]
  8. TOPRAZOLE [Concomitant]

REACTIONS (1)
  - Death [Fatal]
